FAERS Safety Report 12281529 (Version 11)
Quarter: 2018Q2

REPORT INFORMATION
  Report Type: Report from Study
  Country: BR (occurrence: BR)
  Receive Date: 20160419
  Receipt Date: 20180424
  Transmission Date: 20180711
  Serious: Yes (Hospitalization, Other)
  Sender: FDA-Public Use
  Company Number: BR-GLAXOSMITHKLINE-BR2016052297

PATIENT
  Age: 48 Year
  Sex: Female
  Weight: 100 kg

DRUGS (2)
  1. METHOTREXATE (METHOTREXATE SODIUM) [Concomitant]
     Active Substance: METHOTREXATE SODIUM
     Indication: SYSTEMIC LUPUS ERYTHEMATOSUS
     Dosage: 20 MG, WE
     Route: 048
     Dates: start: 201112
  2. BELIMUMAB [Suspect]
     Active Substance: BELIMUMAB
     Indication: SYSTEMIC LUPUS ERYTHEMATOSUS
     Dosage: 10 MG/KG, CYC
     Route: 042
     Dates: start: 20150318

REACTIONS (1)
  - Renal cancer [Recovered/Resolved with Sequelae]

NARRATIVE: CASE EVENT DATE: 20160119
